FAERS Safety Report 16791197 (Version 1)
Quarter: 2019Q3

REPORT INFORMATION
  Report Type: Spontaneous
  Country: US (occurrence: US)
  Receive Date: 20190910
  Receipt Date: 20190910
  Transmission Date: 20191005
  Serious: No
  Sender: FDA-Public Use
  Company Number: US-PERRIGO-18US015054

PATIENT
  Age: 49 Year
  Sex: Female
  Weight: 72.56 kg

DRUGS (4)
  1. TRAMADOL. [Concomitant]
     Active Substance: TRAMADOL
     Indication: PAIN
     Dosage: 50 MG BID TO TID PRN
     Route: 065
  2. CEVIMELINE. [Concomitant]
     Active Substance: CEVIMELINE
     Indication: DRY MOUTH
     Dosage: 30 MG, TID
     Route: 065
     Dates: start: 2018
  3. EVAMIST [Suspect]
     Active Substance: ESTRADIOL
     Dosage: 2 TO 3 SPRAYS QAM, AND 1 TO 2 SPRAYS QHS
     Route: 062
     Dates: start: 201812
  4. EVAMIST [Suspect]
     Active Substance: ESTRADIOL
     Indication: MENOPAUSAL SYMPTOMS
     Dosage: 3.06 MG QAM, 1.53 MG QHS
     Route: 062
     Dates: end: 201812

REACTIONS (2)
  - Drug ineffective [Unknown]
  - Underdose [Unknown]

NARRATIVE: CASE EVENT DATE: 201812
